FAERS Safety Report 24636192 (Version 1)
Quarter: 2024Q4

REPORT INFORMATION
  Report Type: Spontaneous
  Country: CA (occurrence: CA)
  Receive Date: 20241119
  Receipt Date: 20241119
  Transmission Date: 20250115
  Serious: Yes (Hospitalization, Other)
  Sender: BRISTOL-MYERS SQUIBB COMPANY
  Company Number: CA-BRISTOL-MYERS SQUIBB COMPANY-2024-180027

PATIENT
  Age: 65 Year
  Sex: Female

DRUGS (23)
  1. APIXABAN [Suspect]
     Active Substance: APIXABAN
     Indication: Product used for unknown indication
  2. BUPROPION [Concomitant]
     Active Substance: BUPROPION
     Indication: Depression
  3. BUPROPION [Concomitant]
     Active Substance: BUPROPION
  4. CANNABIS SATIVA SUBSP. INDICA TOP [Concomitant]
     Active Substance: CANNABIS SATIVA SUBSP. INDICA TOP
     Indication: Insomnia
  5. CLOMIPRAMINE [Concomitant]
     Active Substance: CLOMIPRAMINE
     Indication: Depression
  6. DAYVIGO [Concomitant]
     Active Substance: LEMBOREXANT
     Indication: Depression
  7. ESCITALOPRAM [Concomitant]
     Active Substance: ESCITALOPRAM OXALATE
     Indication: Depression
  8. FLUOXETINE [Concomitant]
     Active Substance: FLUOXETINE HYDROCHLORIDE
     Indication: Depression
  9. FLUVOXAMINE [Concomitant]
     Active Substance: FLUVOXAMINE
     Indication: Depression
  10. GABAPENTIN [Concomitant]
     Active Substance: GABAPENTIN
     Indication: Depression
  11. LORAZEPAM [Concomitant]
     Active Substance: LORAZEPAM
     Indication: Depression
  12. MIRTAZAPINE [Concomitant]
     Active Substance: MIRTAZAPINE
     Indication: Depression
  13. LEVOMEPROMAZINE [Concomitant]
     Active Substance: LEVOMEPROMAZINE
     Indication: Depression
  14. PANTOPRAZOLE [Concomitant]
     Active Substance: PANTOPRAZOLE
     Indication: Product used for unknown indication
  15. PAROXETINE [Concomitant]
     Active Substance: PAROXETINE
     Indication: Depression
  16. PRAMIPEXOLE [Concomitant]
     Active Substance: PRAMIPEXOLE\PRAMIPEXOLE DIHYDROCHLORIDE
     Indication: Depression
  17. QUETIAPINE [Concomitant]
     Active Substance: QUETIAPINE
     Indication: Depression
  18. REXULTI [Concomitant]
     Active Substance: BREXPIPRAZOLE
     Indication: Depression
  19. RISPERIDONE [Concomitant]
     Active Substance: RISPERIDONE
     Indication: Depression
  20. TRINTELLIX [Concomitant]
     Active Substance: VORTIOXETINE HYDROBROMIDE
     Indication: Product used for unknown indication
  21. VENLAFAXINE HYDROCHLORIDE [Concomitant]
     Active Substance: VENLAFAXINE HYDROCHLORIDE
     Indication: Depression
     Dosage: CAPSULE, EXTENDED RELEASE
  22. ZOLPIDEM [Concomitant]
     Active Substance: ZOLPIDEM TARTRATE
     Indication: Depression
     Dosage: TABLET (ORALLY DISINTEGRATING)
  23. ZOPICLONE [Concomitant]
     Active Substance: ZOPICLONE
     Indication: Product used for unknown indication

REACTIONS (6)
  - Adverse drug reaction [Unknown]
  - Condition aggravated [Unknown]
  - Drug ineffective [Unknown]
  - Suicidal ideation [Unknown]
  - Suicide attempt [Unknown]
  - Hospitalisation [Unknown]
